FAERS Safety Report 8612120-6 (Version None)
Quarter: 2012Q3

REPORT INFORMATION
  Report Type: 
  Country: None (occurrence: None)
  Receive Date: 20120822
  Receipt Date: 20120815
  Transmission Date: 20120928
  Serious: Yes (Hospitalization)
  Sender: FDA-Public Use
  Company Number: DE-TEVA-338035GER

PATIENT
  Sex: Female
  Weight: 64 kg

DRUGS (12)
  1. CARBOPLATIN [Suspect]
     Indication: BREAST CANCER
     Route: 042
     Dates: start: 20120301, end: 20120503
  2. RANITIDINE HCL [Concomitant]
     Dates: start: 20120301
  3. ERYTHROPOETIN [Concomitant]
  4. CARBOPLATIN [Suspect]
     Dosage: AUC 1
     Route: 042
     Dates: start: 20120510
  5. TRASTUZUMAB [Suspect]
     Indication: BREAST CANCER
     Route: 042
     Dates: start: 20120301
  6. DEXAMETHASONE SODIUM PHOSPHATE [Concomitant]
     Dates: start: 20120301
  7. LENOGRASTIM [Concomitant]
  8. PACLITAXEL [Suspect]
     Indication: BREAST CANCER
     Route: 042
     Dates: start: 20120301
  9. DOXORUBICIN HYDROCHLORIDE [Suspect]
     Indication: BREAST CANCER
     Route: 042
     Dates: start: 20120301
  10. CLEMASTIN [Concomitant]
     Dates: start: 20120301
  11. LAPATINIB [Suspect]
     Indication: BREAST CANCER
     Route: 048
     Dates: start: 20120301, end: 20120503
  12. PALONOSETRON [Concomitant]
     Dates: start: 20120315

REACTIONS (4)
  - GENERAL PHYSICAL HEALTH DETERIORATION [None]
  - VOMITING [None]
  - WEIGHT DECREASED [None]
  - DIARRHOEA [None]
